FAERS Safety Report 4403997-9 (Version None)
Quarter: 2004Q3

REPORT INFORMATION
  Report Type: 
  Country: None (occurrence: None)
  Receive Date: 20040719
  Receipt Date: 20040701
  Transmission Date: 20050211
  Serious: Yes (Hospitalization)
  Sender: FDA-Public Use
  Company Number: A0517187A

PATIENT
  Age: 28 Year
  Sex: Female
  Weight: 57.879 kg

DRUGS (1)
  1. NICODERM CQ (FORMULATION UNKNOWN) 14 MG (NICOTINE) [Suspect]
     Indication: EX-SMOKER
     Dosage: 14 MG/TRANSDERMAL
     Route: 062

REACTIONS (4)
  - DIZZINESS [None]
  - PALPITATIONS [None]
  - SYNCOPE [None]
  - TREMOR [None]
